FAERS Safety Report 14721289 (Version 1)
Quarter: 2018Q2

REPORT INFORMATION
  Report Type: Spontaneous
  Country: CN (occurrence: CN)
  Receive Date: 20180405
  Receipt Date: 20180405
  Transmission Date: 20180711
  Serious: Yes (Hospitalization, Other)
  Sender: FDA-Public Use
  Company Number: CN-009507513-1803CHN012514

PATIENT
  Age: 53 Year
  Sex: Male
  Weight: 70 kg

DRUGS (7)
  1. FUROSEMIDE. [Suspect]
     Active Substance: FUROSEMIDE
     Dosage: 20 MG, UNK
     Route: 042
     Dates: start: 2016, end: 2016
  2. METRONIDAZOLE. [Suspect]
     Active Substance: METRONIDAZOLE
     Dosage: 0.5 G, QD; INTRAVENOUS INFUSION
     Route: 041
     Dates: start: 2016
  3. VANCOMYCIN [Suspect]
     Active Substance: VANCOMYCIN
     Dosage: 1 G, Q12H; INTRAVENOUS PUMP
     Route: 042
     Dates: start: 201603, end: 2016
  4. FUROSEMIDE. [Suspect]
     Active Substance: FUROSEMIDE
     Dosage: 20-40 MG, QD
     Route: 042
     Dates: start: 2016, end: 2016
  5. IMIPENEM AND CILASTATIN [Suspect]
     Active Substance: CILASTATIN SODIUM\IMIPENEM
     Indication: PANCREATITIS ACUTE
     Dosage: 1 G, Q6H; INTRAVENOUS INFUSION
     Route: 041
     Dates: start: 201603, end: 2016
  6. VANCOMYCIN [Suspect]
     Active Substance: VANCOMYCIN
     Indication: PANCREATITIS ACUTE
     Dosage: 0.5 G, QH
     Dates: start: 201603, end: 2016
  7. CEFOPERAZONE SODIUM [Suspect]
     Active Substance: CEFOPERAZONE SODIUM
     Dosage: 2 G, Q12H
     Route: 041
     Dates: start: 2016, end: 2016

REACTIONS (5)
  - Drug hypersensitivity [Unknown]
  - Rash [Recovering/Resolving]
  - Tubulointerstitial nephritis [Recovered/Resolved]
  - Rash maculo-papular [Recovering/Resolving]
  - Toxicity to various agents [Recovered/Resolved]

NARRATIVE: CASE EVENT DATE: 2016
